FAERS Safety Report 20655692 (Version 2)
Quarter: 2022Q3

REPORT INFORMATION
  Report Type: Spontaneous
  Country: US (occurrence: None)
  Receive Date: 20220330
  Receipt Date: 20220927
  Transmission Date: 20221026
  Serious: Yes (Other)
  Sender: FDA-Public Use
  Company Number: US-ROCHE-3054869

PATIENT
  Age: 48 Year
  Sex: Female
  Weight: 44.038 kg

DRUGS (3)
  1. OCREVUS [Suspect]
     Active Substance: OCRELIZUMAB
     Indication: Relapsing-remitting multiple sclerosis
     Route: 042
     Dates: start: 201807
  2. OCREVUS [Suspect]
     Active Substance: OCRELIZUMAB
     Dosage: STANDARD DOSE ;ONGOING: YES
     Route: 042
     Dates: start: 201901
  3. PENTASA [Concomitant]
     Active Substance: MESALAMINE
     Indication: Coeliac disease
     Route: 048
     Dates: start: 20220601

REACTIONS (5)
  - Weight decreased [Recovering/Resolving]
  - Multiple sclerosis relapse [Recovered/Resolved]
  - Coeliac disease [Not Recovered/Not Resolved]
  - CD19 lymphocyte count abnormal [Not Recovered/Not Resolved]
  - Optic neuritis [Recovered/Resolved]

NARRATIVE: CASE EVENT DATE: 20181201
